FAERS Safety Report 9676435 (Version 1)
Quarter: 2013Q4

REPORT INFORMATION
  Report Type: Spontaneous
  Country: US (occurrence: US)
  Receive Date: 20131107
  Receipt Date: 20131107
  Transmission Date: 20140711
  Serious: Yes (Other)
  Sender: FDA-Public Use
  Company Number: CHPA2013US016685

PATIENT
  Age: 100 Year
  Sex: Female

DRUGS (2)
  1. GAS-X EXTRA STRENGTH SOFTGELS [Suspect]
     Dosage: 1 DF, QD
     Route: 048
  2. GAS-X ULTRA STRENGTH [Suspect]
     Dosage: 1 DF, PRN
     Route: 048
     Dates: start: 20131031, end: 20131101

REACTIONS (3)
  - Urinary tract infection [Unknown]
  - Eructation [Not Recovered/Not Resolved]
  - Malaise [Not Recovered/Not Resolved]
